FAERS Safety Report 4839068-7 (Version None)
Quarter: 2005Q4

REPORT INFORMATION
  Report Type: 
  Country: None (occurrence: None)
  Receive Date: 20051128
  Receipt Date: 20051128
  Transmission Date: 20060501
  Serious: Yes (Hospitalization, Other)
  Sender: FDA-Public Use
  Company Number: None

PATIENT
  Sex: Female
  Weight: 50.9 kg

DRUGS (3)
  1. THALIDOMIDE [Suspect]
     Indication: MULTIPLE MYELOMA
     Dosage: SEE IMAGE
     Dates: start: 20050923, end: 20051008
  2. THALIDOMIDE [Suspect]
     Indication: MULTIPLE MYELOMA
     Dosage: SEE IMAGE
     Dates: start: 20051004
  3. DECADRON [Suspect]
     Dosage: SEE IMAGE
     Dates: start: 20051004, end: 20051007

REACTIONS (3)
  - CONVULSION [None]
  - HYPERGLYCAEMIA [None]
  - UNEVALUABLE EVENT [None]
